FAERS Safety Report 7776136-4 (Version None)
Quarter: 2011Q3

REPORT INFORMATION
  Report Type: 
  Country: None (occurrence: None)
  Receive Date: 20110926
  Receipt Date: 20110920
  Transmission Date: 20111222
  Serious: Yes (Hospitalization)
  Sender: FDA-Public Use
  Company Number: US-BRISTOL-MYERS SQUIBB COMPANY-16069999

PATIENT
  Age: 61 Year
  Sex: Female
  Weight: 65 kg

DRUGS (19)
  1. FLUOROURACIL [Suspect]
     Indication: ANAL CANCER
     Route: 042
     Dates: start: 20110801, end: 20110804
  2. ACETAMINOPHEN [Concomitant]
  3. ONDANSETRON [Concomitant]
  4. AMOXICILLIN [Concomitant]
  5. LOPERAMIDE HCL [Concomitant]
  6. LORAZEPAM [Concomitant]
  7. POTASSIUM CHLORIDE [Concomitant]
  8. CEFEPIME [Concomitant]
  9. METOCLOPRAMIDE [Concomitant]
  10. ERBITUX [Suspect]
     Indication: ANAL CANCER
     Route: 042
     Dates: start: 20110725, end: 20110808
  11. ALCLOMETASONE DIPROPIONATE [Concomitant]
     Route: 061
  12. MORPHINE [Concomitant]
  13. SODIUM CHLORIDE INJ [Concomitant]
  14. DALTEPARIN SODIUM [Concomitant]
  15. ESOMEPRAZOLE SODIUM [Concomitant]
  16. CISPLATIN [Suspect]
     Indication: ANAL CANCER
     Route: 042
     Dates: start: 20110801, end: 20110801
  17. DOCUSATE SODIUM + SENNA [Concomitant]
  18. CITALOPRAM HYDROBROMIDE [Concomitant]
  19. FILGRASTIM [Concomitant]

REACTIONS (7)
  - STOMATITIS [None]
  - VOMITING [None]
  - NAUSEA [None]
  - DIARRHOEA [None]
  - NEUTROPHIL COUNT DECREASED [None]
  - DEHYDRATION [None]
  - FATIGUE [None]
